FAERS Safety Report 18571916 (Version 1)
Quarter: 2020Q4

REPORT INFORMATION
  Report Type: Spontaneous
  Country: IT (occurrence: IT)
  Receive Date: 20201202
  Receipt Date: 20201202
  Transmission Date: 20210114
  Serious: Yes (Hospitalization, Other)
  Sender: FDA-Public Use
  Company Number: IT-AUROBINDO-AUR-APL-2013-04375

PATIENT
  Age: 16 Year
  Sex: Female

DRUGS (4)
  1. LORAZEPAM AUROBINDO 1MG TABLETS [Suspect]
     Active Substance: LORAZEPAM
     Indication: DRUG ABUSE
     Dosage: 17.5 MILLIGRAM, UNK, 17.5 MG, 6-7 TABLETS
     Route: 048
     Dates: start: 20130205, end: 20130205
  2. VALERIAN [Suspect]
     Active Substance: VALERIAN
     Indication: PRODUCT USED FOR UNKNOWN INDICATION
     Dosage: UNK
     Route: 048
     Dates: start: 20130205, end: 20130205
  3. MOMENT [Suspect]
     Active Substance: IBUPROFEN
     Indication: PRODUCT USED FOR UNKNOWN INDICATION
     Dosage: 1200 MG,TOTAL,
     Route: 048
     Dates: start: 20130205, end: 20130205
  4. PAROXETIN AUROBINDO FILM-COATED TABLET 20MG [Suspect]
     Active Substance: PAROXETINE HYDROCHLORIDE
     Indication: DRUG ABUSE
     Dosage: 120 MG, TOTAL
     Route: 048
     Dates: start: 20130205, end: 20130205

REACTIONS (8)
  - Confusional state [Not Recovered/Not Resolved]
  - Dysarthria [Not Recovered/Not Resolved]
  - Intentional overdose [Not Recovered/Not Resolved]
  - Drug abuse [Not Recovered/Not Resolved]
  - Mydriasis [Not Recovered/Not Resolved]
  - Sopor [Not Recovered/Not Resolved]
  - Intentional self-injury [Not Recovered/Not Resolved]
  - Slow speech [Not Recovered/Not Resolved]

NARRATIVE: CASE EVENT DATE: 20130205
